FAERS Safety Report 22262337 (Version 1)
Quarter: 2023Q2

REPORT INFORMATION
  Report Type: Report from Study
  Country: US (occurrence: US)
  Receive Date: 20230428
  Receipt Date: 20230428
  Transmission Date: 20230722
  Serious: Yes (Hospitalization, Other)
  Sender: FDA-Public Use
  Company Number: US-ABBVIE-4744342

PATIENT
  Sex: Male
  Weight: 78 kg

DRUGS (1)
  1. RINVOQ [Suspect]
     Active Substance: UPADACITINIB
     Indication: Rash pruritic
     Dosage: STOP DATE AUG 2022 TO SEP 2022.
     Route: 048
     Dates: start: 202110

REACTIONS (7)
  - Prostatomegaly [Recovered/Resolved]
  - Pruritus [Unknown]
  - Ulcer [Recovered/Resolved]
  - Lymphoma [Not Recovered/Not Resolved]
  - Urinary tract infection [Recovered/Resolved]
  - Dermatitis atopic [Recovered/Resolved]
  - Nasopharyngitis [Unknown]

NARRATIVE: CASE EVENT DATE: 20220101
